FAERS Safety Report 15795500 (Version 1)
Quarter: 2019Q1

REPORT INFORMATION
  Report Type: Spontaneous
  Country: US (occurrence: US)
  Receive Date: 20190107
  Receipt Date: 20190107
  Transmission Date: 20190417
  Serious: Yes (Hospitalization, Disabling, Other)
  Sender: FDA-Public Use
  Company Number: US-TARO-2018TAR00936

PATIENT
  Sex: Female

DRUGS (3)
  1. AMIODARONE HCL TABLET 200 MG [Suspect]
     Active Substance: AMIODARONE HYDROCHLORIDE
     Indication: ATRIAL FIBRILLATION
     Dosage: UNK
     Route: 048
     Dates: start: 201401
  2. UNSPECIFIED OTHER MEDICATION [Suspect]
     Active Substance: UNSPECIFIED INGREDIENT
     Indication: LUNG DISORDER
  3. UNSPECIFIED OTHER MEDICATION [Suspect]
     Active Substance: UNSPECIFIED INGREDIENT
     Indication: BLINDNESS
     Dosage: UNK

REACTIONS (8)
  - Blindness [Unknown]
  - Lung disorder [Unknown]
  - Asthenia [Unknown]
  - Off label use [Unknown]
  - Oedema [Unknown]
  - Unevaluable event [Unknown]
  - Pulmonary hypertension [Unknown]
  - Coordination abnormal [Unknown]

NARRATIVE: CASE EVENT DATE: 201401
